FAERS Safety Report 20217237 (Version 1)
Quarter: 2021Q4

REPORT INFORMATION
  Report Type: Spontaneous
  Country: GB (occurrence: GB)
  Receive Date: 20211222
  Receipt Date: 20211222
  Transmission Date: 20220303
  Serious: Yes (Other)
  Sender: FDA-Public Use
  Company Number: None

PATIENT

DRUGS (17)
  1. DIGOXIN [Suspect]
     Active Substance: DIGOXIN
     Dosage: 62.5 UG, QD,TABLET
     Dates: start: 20211125
  2. BISOPROLOL [Concomitant]
     Active Substance: BISOPROLOL
     Dosage: 1 DOSAGE FORM, QD,ONE TO BE TAKEN EACH DAY
     Dates: start: 20200901
  3. CETIRIZINE [Concomitant]
     Active Substance: CETIRIZINE HYDROCHLORIDE
     Dosage: 1 DOSAGE FORM, QD,ONE TO BE TAKEN DAILY
     Dates: start: 20210430
  4. CODEINE PHOSPHATE [Concomitant]
     Active Substance: CODEINE PHOSPHATE
     Dosage: UNK, QID,ONE OR TWO TO BE TAKEN FOUR TIMES DAILY AS REQU...
     Dates: start: 20210311
  5. DIHYDROCODEINE [Concomitant]
     Active Substance: DIHYDROCODEINE
     Dosage: 1 DOSAGE FORM, QID,ONE TO BE TAKEN FOUR TIMES A DAY WHEN REQUIRED ...
     Dates: start: 20210610, end: 20211125
  6. DILTIAZEM [Concomitant]
     Active Substance: DILTIAZEM
     Dosage: 1 DOSAGE FORM, BID,ONE TO BE TAKEN TWICE A DAY
     Dates: start: 20210616, end: 20211124
  7. DULOXETINE [Concomitant]
     Active Substance: DULOXETINE
     Dosage: 1 DOSAGE FORM, TID,ONE TO BE TAKEN THREE TIMES DAILY
     Dates: start: 20200424
  8. FERROUS FUMARATE [Concomitant]
     Active Substance: FERROUS FUMARATE
     Dosage: 1 DOSAGE FORM, BID,ONE TO BE TAKEN TWICE A DAY
     Dates: start: 20201204
  9. FOLIC ACID [Concomitant]
     Active Substance: FOLIC ACID
     Dosage: 1 DOSAGE FORM, QD,ONE TO BE TAKEN DAILY
     Dates: start: 20090212
  10. FUROSEMIDE [Concomitant]
     Active Substance: FUROSEMIDE
     Dosage: 1 DOSAGE FORM, QD,ONE TO BE TAKEN EACH MORNING
     Dates: start: 20210215
  11. POTASSIUM BICARBONATE\SODIUM ALGINATE [Concomitant]
     Active Substance: POTASSIUM BICARBONATE\SODIUM ALGINATE
     Dosage: UNK,ONE OR TWO 5ML SPOONFULS TO BE TAKEN AFTER MEAL...
     Dates: start: 20210311
  12. HYDROXOCOBALAMIN [Concomitant]
     Active Substance: HYDROXOCOBALAMIN
     Dosage: 1 DOSAGE FORM, 1 INJECTION EVERY 3 MONTHS
     Dates: start: 20200403
  13. LANSOPRAZOLE [Concomitant]
     Active Substance: LANSOPRAZOLE
     Dosage: 1 DOSAGE FORM, BID,ONE TO BE TAKEN TWICE A DAY
     Dates: start: 20210104
  14. POLYETHYLENE GLYCOLS [Concomitant]
     Active Substance: POLYETHYLENE GLYCOLS
     Dosage: UNK,TAKE 1-2 SACHET DAILY - ADJUST DOSE ACCORDING T..
     Dates: start: 20180116, end: 20211124
  15. MOVELAT [Concomitant]
     Dosage: UNK,TWO TO SIX INCHES (5 -15 CM) TO BE MASSAGED TO ...
     Dates: start: 20201207
  16. PREGABALIN [Concomitant]
     Active Substance: PREGABALIN
     Dosage: 1 DOSAGE FORM, TID,ONE TO BE TAKEN THREE TIMES A DAY
     Dates: start: 20200810
  17. PROCHLORPERAZINE [Concomitant]
     Active Substance: PROCHLORPERAZINE
     Dosage: 1 DOSAGE FORM, PRN,1 TABLET THREE TIMES A DAY AS REQUIRED
     Dates: start: 20211125

REACTIONS (3)
  - Hallucination [Recovered/Resolved]
  - Amnesia [Recovered/Resolved]
  - Dyskinesia [Recovered/Resolved]

NARRATIVE: CASE EVENT DATE: 20211129
